FAERS Safety Report 10217226 (Version 7)
Quarter: 2015Q2

REPORT INFORMATION
  Report Type: Report from Study
  Country: US (occurrence: US)
  Receive Date: 20140604
  Receipt Date: 20150617
  Transmission Date: 20150821
  Serious: Yes (Other)
  Sender: FDA-Public Use
  Company Number: US-SA-2013SA128666

PATIENT
  Age: 50 Year
  Sex: Male

DRUGS (13)
  1. AUBAGIO [Suspect]
     Active Substance: TERIFLUNOMIDE
     Indication: MULTIPLE SCLEROSIS
     Route: 048
     Dates: start: 201407
  2. XANAX [Concomitant]
     Active Substance: ALPRAZOLAM
     Route: 048
  3. FLOMAX [Concomitant]
     Active Substance: TAMSULOSIN HYDROCHLORIDE
     Route: 048
  4. SULFAMETHOXAZOLE [Concomitant]
     Active Substance: SULFAMETHOXAZOLE
     Dates: start: 20140205
  5. FIORICET [Concomitant]
     Active Substance: ACETAMINOPHEN\BUTALBITAL\CAFFEINE
     Route: 048
  6. LISINOPRIL. [Concomitant]
     Active Substance: LISINOPRIL
     Route: 048
  7. LOVASTATIN. [Concomitant]
     Active Substance: LOVASTATIN
     Route: 048
  8. AUBAGIO [Suspect]
     Active Substance: TERIFLUNOMIDE
     Indication: MULTIPLE SCLEROSIS
     Route: 048
     Dates: start: 20131126
  9. PREVACID [Concomitant]
     Active Substance: LANSOPRAZOLE
     Route: 048
  10. NUVIGIL [Concomitant]
     Active Substance: ARMODAFINIL
  11. RITALIN [Concomitant]
     Active Substance: METHYLPHENIDATE HYDROCHLORIDE
     Dates: start: 20150609
  12. CELEBREX [Concomitant]
     Active Substance: CELECOXIB
     Route: 048
  13. EFFEXOR [Concomitant]
     Active Substance: VENLAFAXINE HYDROCHLORIDE
     Route: 048

REACTIONS (30)
  - Prostatic operation [Unknown]
  - Hypoaesthesia [Unknown]
  - Blood alkaline phosphatase increased [Unknown]
  - Hypertension [Unknown]
  - Multiple sclerosis relapse [Unknown]
  - Dry mouth [Unknown]
  - Toothache [Unknown]
  - Heart rate increased [Unknown]
  - Skin disorder [Unknown]
  - Excessive eye blinking [Unknown]
  - Dyspnoea [Not Recovered/Not Resolved]
  - Faeces soft [Unknown]
  - Alopecia [Unknown]
  - Paraesthesia [Unknown]
  - Paraesthesia [Recovering/Resolving]
  - Headache [Unknown]
  - Infected cyst [Unknown]
  - Foot operation [Unknown]
  - Sleep apnoea syndrome [Unknown]
  - Urinary retention [Unknown]
  - Cyst [Not Recovered/Not Resolved]
  - Skin mass [Unknown]
  - Chills [Not Recovered/Not Resolved]
  - Fatigue [Not Recovered/Not Resolved]
  - Dysphonia [Unknown]
  - Myalgia [Not Recovered/Not Resolved]
  - Paraesthesia [Not Recovered/Not Resolved]
  - Malaise [Unknown]
  - Rash [Not Recovered/Not Resolved]
  - Panic attack [Recovering/Resolving]

NARRATIVE: CASE EVENT DATE: 201403
